FAERS Safety Report 17431516 (Version 2)
Quarter: 2020Q1

REPORT INFORMATION
  Report Type: Report from Study
  Country: CA (occurrence: CA)
  Receive Date: 20200218
  Receipt Date: 20200227
  Transmission Date: 20200409
  Serious: Yes (Life-Threatening)
  Sender: FDA-Public Use
  Company Number: NVSC2020CA039998

PATIENT
  Age: 21 Year
  Sex: Male

DRUGS (4)
  1. TOPOTECAN HYDROCHLORIDE. [Suspect]
     Active Substance: TOPOTECAN HYDROCHLORIDE
     Indication: NEOPLASM
     Dosage: 0.12 MG/M2, QD 28 DAYS CYCLE
     Route: 048
     Dates: start: 20150730, end: 20160727
  2. TOPAZ [Concomitant]
     Indication: PRODUCT USED FOR UNKNOWN INDICATION
     Route: 065
  3. PAZOPANIB [Suspect]
     Active Substance: PAZOPANIB
     Indication: NEOPLASM
     Dosage: 125 MG/M2, QD 28 DAYS CYCLE
     Route: 048
     Dates: start: 20150731, end: 20160727
  4. VP-16 [Concomitant]
     Active Substance: ETOPOSIDE
     Indication: PRODUCT USED FOR UNKNOWN INDICATION
     Dosage: 50 MG, 2 MONTHS
     Route: 048
     Dates: start: 201608, end: 20160929

REACTIONS (2)
  - Burkitt^s leukaemia [Recovering/Resolving]
  - Second primary malignancy [Recovering/Resolving]

NARRATIVE: CASE EVENT DATE: 20200201
